FAERS Safety Report 11081814 (Version 1)
Quarter: 2015Q2

REPORT INFORMATION
  Report Type: Spontaneous
  Country: BR (occurrence: BR)
  Receive Date: 20150501
  Receipt Date: 20150501
  Transmission Date: 20150821
  Serious: Yes (Hospitalization)
  Sender: FDA-Public Use
  Company Number: BR-BAUSCH-BL-2015-011833

PATIENT
  Age: 77 Year
  Sex: Female

DRUGS (4)
  1. ELIDEL [Suspect]
     Active Substance: PIMECROLIMUS
     Indication: DERMATITIS
     Route: 003
     Dates: end: 2015
  2. ARADOIS 50 MG [Concomitant]
     Indication: PRODUCT USED FOR UNKNOWN INDICATION
  3. MODURETIC 5-50 [Concomitant]
     Active Substance: AMILORIDE HYDROCHLORIDE\HYDROCHLOROTHIAZIDE
     Indication: PRODUCT USED FOR UNKNOWN INDICATION
  4. SINVASCOR 20MG [Concomitant]
     Indication: PRODUCT USED FOR UNKNOWN INDICATION

REACTIONS (11)
  - Calculus urinary [Recovered/Resolved]
  - Gait disturbance [Not Recovered/Not Resolved]
  - Erythema [Recovering/Resolving]
  - Corneal lesion [Recovering/Resolving]
  - Nephrolithiasis [Recovered/Resolved]
  - Blepharitis [Recovering/Resolving]
  - Neuropathy peripheral [Recovering/Resolving]
  - Vitamin D deficiency [Unknown]
  - Eye pain [Unknown]
  - Dermatitis atopic [Recovering/Resolving]
  - Streptococcal urinary tract infection [Recovered/Resolved]

NARRATIVE: CASE EVENT DATE: 201109
